FAERS Safety Report 10072371 (Version 2)
Quarter: 2014Q2

REPORT INFORMATION
  Report Type: Spontaneous
  Country: US (occurrence: US)
  Receive Date: 20140411
  Receipt Date: 20140612
  Transmission Date: 20141212
  Serious: Yes (Life-Threatening, Hospitalization, Other)
  Sender: FDA-Public Use
  Company Number: US-BAYER-2014-053814

PATIENT
  Age: 31 Year
  Sex: Female
  Weight: 90.25 kg

DRUGS (3)
  1. MIRENA [Suspect]
     Indication: CONTRACEPTION
     Dosage: 20 MCG/24HR, CONT
     Route: 015
     Dates: start: 20081219, end: 20120503
  2. MIRENA [Suspect]
     Indication: MENORRHAGIA
  3. PRILOSEC [Concomitant]
     Dosage: UNK
     Dates: start: 2012, end: 2013

REACTIONS (9)
  - Uterine perforation [None]
  - Abdominal pain [None]
  - Injury [None]
  - Pain [None]
  - General physical health deterioration [None]
  - Anxiety [None]
  - Anhedonia [None]
  - Infection [None]
  - Emotional distress [None]
